FAERS Safety Report 7090710-2 (Version None)
Quarter: 2010Q4

REPORT INFORMATION
  Report Type: 
  Country: None (occurrence: None)
  Receive Date: 20101012
  Receipt Date: 20100629
  Transmission Date: 20110411
  Serious: No
  Sender: FDA-Public Use
  Company Number: US-001201

PATIENT
  Age: 24 Month
  Sex: Male
  Weight: 17.2367 kg

DRUGS (1)
  1. KUVAN [Suspect]
     Indication: PHENYLKETONURIA
     Dosage: 400 MG QD ORAL
     Route: 048
     Dates: start: 20100501, end: 20100624

REACTIONS (1)
  - ANGER [None]
